FAERS Safety Report 4303753-6 (Version None)
Quarter: 2004Q1

REPORT INFORMATION
  Report Type: 
  Country: None (occurrence: None)
  Receive Date: 20040223
  Receipt Date: 20040203
  Transmission Date: 20041129
  Serious: Yes (Other)
  Sender: FDA-Public Use
  Company Number: B0322033A

PATIENT
  Age: 39 Year
  Sex: Male

DRUGS (2)
  1. THIOGUANINE [Suspect]
     Dates: start: 20000701
  2. AZATHIOPRINE [Concomitant]

REACTIONS (4)
  - ALANINE AMINOTRANSFERASE INCREASED [None]
  - ASPARTATE AMINOTRANSFERASE INCREASED [None]
  - HEPATIC FIBROSIS [None]
  - NODULAR REGENERATIVE HYPERPLASIA [None]
